FAERS Safety Report 15825845 (Version 1)
Quarter: 2019Q1

REPORT INFORMATION
  Report Type: Spontaneous
  Country: IT (occurrence: IT)
  Receive Date: 20190115
  Receipt Date: 20190115
  Transmission Date: 20190417
  Serious: Yes (Other)
  Sender: FDA-Public Use
  Company Number: IT-GLAXOSMITHKLINE-IT2019004651

PATIENT
  Age: 1 Year
  Sex: Female

DRUGS (2)
  1. VENTOLIN [Suspect]
     Active Substance: ALBUTEROL SULFATE
     Indication: PNEUMONIA
     Dosage: 2 MG, QD
     Route: 048
     Dates: start: 20181019, end: 20181029
  2. AUGMENTIN [Suspect]
     Active Substance: AMOXICILLIN\CLAVULANATE POTASSIUM
     Indication: PNEUMONIA
     Dosage: 5 ML, QD
     Route: 048
     Dates: start: 20181019, end: 20181029

REACTIONS (3)
  - Therapy non-responder [Unknown]
  - Dyspnoea [Recovering/Resolving]
  - Bronchostenosis [Recovering/Resolving]

NARRATIVE: CASE EVENT DATE: 20181029
